FAERS Safety Report 13281423 (Version 1)
Quarter: 2017Q1

REPORT INFORMATION
  Report Type: Spontaneous
  Country: US (occurrence: US)
  Receive Date: 20170228
  Receipt Date: 20170228
  Transmission Date: 20170428
  Serious: No
  Sender: FDA-Public Use
  Company Number: None

PATIENT
  Age: 19 Year
  Sex: Female
  Weight: 87.35 kg

DRUGS (1)
  1. NEXPLANON [Suspect]
     Active Substance: ETONOGESTREL

REACTIONS (7)
  - Menorrhagia [None]
  - Depression [None]
  - Mood swings [None]
  - Weight increased [None]
  - Menstruation irregular [None]
  - Libido decreased [None]
  - Anxiety [None]

NARRATIVE: CASE EVENT DATE: 20170226
